FAERS Safety Report 6882507-0 (Version None)
Quarter: 2010Q3

REPORT INFORMATION
  Report Type: 
  Country: None (occurrence: None)
  Receive Date: 20100729
  Receipt Date: 20100726
  Transmission Date: 20110219
  Serious: Yes (Hospitalization)
  Sender: FDA-Public Use
  Company Number: JP-BAYER-200910984BYL

PATIENT
  Age: 45 Year
  Sex: Male
  Weight: 62 kg

DRUGS (15)
  1. NEXAVAR [Suspect]
     Indication: RENAL CELL CARCINOMA
     Dosage: TOTAL DAILY DOSE: 200 MG  UNIT DOSE: 200 MG
     Route: 048
     Dates: start: 20090121, end: 20090316
  2. ISOTONIC SODIUM CHLORIDE SOLUTION [Concomitant]
     Dosage: UNIT DOSE: 100 ML
     Route: 041
  3. SOL-MELCORT [Concomitant]
     Route: 041
  4. SOLDEM 3A [Concomitant]
     Dosage: UNIT DOSE: 500 ML
     Route: 041
  5. DIAINAMIX [Concomitant]
     Dosage: UNIT DOSE: 10 ML
     Route: 041
  6. ASCORBIC ACID [Concomitant]
     Dosage: UNIT DOSE: 500 MG
     Route: 041
  7. NEOPHAGEN [Concomitant]
     Dosage: UNIT DOSE: 20 ML
     Route: 041
  8. ALYPROST [Concomitant]
     Dosage: UNIT DOSE: 5 ?G
     Route: 041
  9. DEXTROSE [Concomitant]
     Dosage: UNIT DOSE: 5 %
     Route: 041
  10. OMEPRAL [Concomitant]
     Indication: LIVER DISORDER
     Dosage: UNIT DOSE: 20 MG
     Route: 048
     Dates: start: 20090407, end: 20090407
  11. OMEPRAL [Concomitant]
     Dosage: UNIT DOSE: 20 MG
     Route: 048
     Dates: start: 20090421, end: 20090421
  12. OMEPRAL [Concomitant]
     Dosage: UNIT DOSE: 20 MG
     Route: 048
     Dates: start: 20090512, end: 20090602
  13. GAMOFA D [Concomitant]
     Indication: GASTRIC ULCER
     Dosage: UNIT DOSE: 20 MG
     Route: 048
     Dates: start: 20090324, end: 20090324
  14. GAMOFA D [Concomitant]
     Dosage: UNIT DOSE: 20 MG
     Route: 048
     Dates: start: 20090331, end: 20090331
  15. GAMOFA D [Concomitant]
     Dosage: UNIT DOSE: 20 MG
     Route: 048
     Dates: start: 20090316, end: 20090316

REACTIONS (1)
  - LIVER DISORDER [None]
